FAERS Safety Report 6608932-0 (Version None)
Quarter: 2010Q1

REPORT INFORMATION
  Report Type: 
  Country: None (occurrence: None)
  Receive Date: 20100301
  Receipt Date: 20100219
  Transmission Date: 20100710
  Serious: No
  Sender: FDA-Public Use
  Company Number: US-B.I. PHARMACEUTICALS,INC./RIDGEFIELD-2010-BP-01565BP

PATIENT
  Sex: Male
  Weight: 90.72 kg

DRUGS (3)
  1. FLOMAX [Suspect]
     Dosage: 0.8 MG
     Dates: start: 20100124
  2. KAPIDEX [Suspect]
     Indication: DYSPEPSIA
     Dates: start: 20100118
  3. RANITIDINE [Suspect]

REACTIONS (4)
  - BURNING SENSATION [None]
  - DYSURIA [None]
  - TREMOR [None]
  - URINE FLOW DECREASED [None]
